FAERS Safety Report 5114345-3 (Version None)
Quarter: 2006Q3

REPORT INFORMATION
  Report Type: 
  Country: None (occurrence: None)
  Receive Date: 20060731
  Receipt Date: 20060503
  Transmission Date: 20061208
  Serious: No
  Sender: FDA-Public Use
  Company Number: 2006PV013214

PATIENT
  Age: 72 Year
  Sex: Male
  Weight: 125.6464 kg

DRUGS (3)
  1. BYETTA [Suspect]
     Indication: DIABETES MELLITUS NON-INSULIN-DEPENDENT
     Dosage: 10 MCG;QD;SC;5 MCG;BID;SC
     Route: 058
     Dates: start: 20051222, end: 20060121
  2. BYETTA [Suspect]
     Indication: DIABETES MELLITUS NON-INSULIN-DEPENDENT
     Dosage: 10 MCG;QD;SC;5 MCG;BID;SC
     Route: 058
     Dates: start: 20060122
  3. BYETTA [Suspect]
     Indication: DIABETES MELLITUS NON-INSULIN-DEPENDENT
     Dosage: 10 MCG;QD;SC;5 MCG;BID;SC
     Route: 058
     Dates: start: 20060122

REACTIONS (5)
  - ABDOMINAL DISTENSION [None]
  - DECREASED APPETITE [None]
  - FLATULENCE [None]
  - STOMACH DISCOMFORT [None]
  - WEIGHT DECREASED [None]
